FAERS Safety Report 4839695-7 (Version None)
Quarter: 2005Q4

REPORT INFORMATION
  Report Type: 
  Country: None (occurrence: None)
  Receive Date: 20051129
  Receipt Date: 20050610
  Transmission Date: 20060501
  Serious: No
  Sender: FDA-Public Use
  Company Number: US-GLAXOSMITHKLINE-A0562109A

PATIENT
  Age: 52 Year
  Sex: Female

DRUGS (4)
  1. WELLBUTRIN SR [Suspect]
     Indication: DEPRESSION
     Dosage: 200MG TWICE PER DAY
     Route: 048
     Dates: start: 20030601
  2. WELLBUTRIN XL [Suspect]
     Indication: DEPRESSION
     Dosage: 450MG PER DAY
     Route: 048
     Dates: start: 20031001
  3. LIPITOR [Concomitant]
  4. ESTRADIOL INJ [Concomitant]

REACTIONS (4)
  - DRUG INEFFECTIVE [None]
  - INSOMNIA [None]
  - WEIGHT DECREASED [None]
  - WEIGHT INCREASED [None]
